FAERS Safety Report 18940730 (Version 3)
Quarter: 2025Q2

REPORT INFORMATION
  Report Type: Spontaneous
  Country: MX (occurrence: MX)
  Receive Date: 20210225
  Receipt Date: 20250630
  Transmission Date: 20250716
  Serious: Yes (Other)
  Sender: PFIZER
  Company Number: MX-MLMSERVICE-20210208-2711558-1

PATIENT
  Age: 2 Year
  Sex: Male

DRUGS (5)
  1. DOXYCYCLINE HYCLATE [Suspect]
     Active Substance: DOXYCYCLINE HYCLATE
     Indication: Jaundice
     Dosage: 2.2 MG/KG, 1X/DAY
     Route: 048
     Dates: start: 201511, end: 201512
  2. DOXYCYCLINE HYCLATE [Suspect]
     Active Substance: DOXYCYCLINE HYCLATE
     Indication: Pyrexia
  3. AMOXICILLIN [Concomitant]
     Active Substance: AMOXICILLIN
  4. METHYLPREDNISOLONE [Concomitant]
     Active Substance: METHYLPREDNISOLONE
     Indication: Haemophagocytic lymphohistiocytosis
     Dosage: 30 MG/KG, 1X/DAY
  5. NIMESULIDE [Concomitant]
     Active Substance: NIMESULIDE

REACTIONS (2)
  - Gastric haemorrhage [Unknown]
  - Off label use [Unknown]

NARRATIVE: CASE EVENT DATE: 20150101
